FAERS Safety Report 8424130-2 (Version None)
Quarter: 2012Q2

REPORT INFORMATION
  Report Type: 
  Country: None (occurrence: None)
  Receive Date: 20120608
  Receipt Date: 20120420
  Transmission Date: 20120825
  Serious: No
  Sender: FDA-Public Use
  Company Number: US-ASTRAZENECA-2012SE26444

PATIENT
  Age: 83 Year
  Sex: Female

DRUGS (2)
  1. PULMICORT [Suspect]
     Dosage: 0.25 MG PER 2 ML, BID
     Route: 055
  2. NEXIUM [Suspect]
     Route: 048

REACTIONS (2)
  - OSTEOPOROSIS [None]
  - OFF LABEL USE [None]
